FAERS Safety Report 7236650-7 (Version None)
Quarter: 2011Q1

REPORT INFORMATION
  Report Type: 
  Country: None (occurrence: None)
  Receive Date: 20110120
  Receipt Date: 20110114
  Transmission Date: 20110831
  Serious: Yes (Other)
  Sender: FDA-Public Use
  Company Number: FR-PFIZER INC-2011009806

PATIENT
  Age: 52 Year
  Sex: Male

DRUGS (4)
  1. SIMVASTATIN [Suspect]
     Dosage: 40 MG, 1X/DAY
     Route: 048
     Dates: start: 20090610, end: 20091103
  2. SIMVASTATIN [Suspect]
     Indication: DYSLIPIDAEMIA
     Dosage: 80 MG, 1X/DAY
     Route: 048
     Dates: start: 20080610, end: 20090610
  3. ATORVASTATIN [Suspect]
     Dosage: 80 MG, 1X/DAY
     Route: 048
     Dates: start: 20100424, end: 20101120
  4. CARDYL [Suspect]
     Dosage: 80 MG, 1X/DAY
     Route: 048
     Dates: start: 20100424, end: 20101120

REACTIONS (2)
  - PULMONARY FIBROSIS [None]
  - DYSPNOEA [None]
